FAERS Safety Report 7672566-X (Version None)
Quarter: 2011Q3

REPORT INFORMATION
  Report Type: 
  Country: None (occurrence: None)
  Receive Date: 20110809
  Receipt Date: 20110801
  Transmission Date: 20111222
  Serious: Yes (Other)
  Sender: FDA-Public Use
  Company Number: FR-SANOFI-AVENTIS-2011SA049734

PATIENT
  Age: 76 Year
  Sex: Female

DRUGS (11)
  1. CLOPIDOGREL BISULFATE [Suspect]
     Route: 065
     Dates: start: 20090501
  2. CLOPIDOGREL BISULFATE [Suspect]
     Route: 065
     Dates: start: 20100326, end: 20100328
  3. ACENOCOUMAROL [Concomitant]
  4. CLOPIDOGREL BISULFATE [Suspect]
     Indication: TRANSIENT ISCHAEMIC ATTACK
     Route: 065
     Dates: start: 20090501
  5. RAMIPRIL [Concomitant]
  6. ACETAMINOPHEN [Concomitant]
  7. PANTOPRAZOLE [Concomitant]
  8. INSULIN [Concomitant]
  9. ATENOLOL [Concomitant]
  10. LORAZEPAM [Concomitant]
  11. CLOPIDOGREL BISULFATE [Suspect]
     Route: 065
     Dates: start: 20100326, end: 20100328

REACTIONS (6)
  - PANCREATITIS ACUTE [None]
  - ABDOMINAL PAIN [None]
  - LIPASE INCREASED [None]
  - BLOOD AMYLASE INCREASED [None]
  - C-REACTIVE PROTEIN INCREASED [None]
  - PULMONARY EMBOLISM [None]
